FAERS Safety Report 9260216 (Version 2)
Quarter: 2014Q2

REPORT INFORMATION
  Report Type: Spontaneous
  Country: US (occurrence: US)
  Receive Date: 20130429
  Receipt Date: 20140423
  Transmission Date: 20141212
  Serious: No
  Sender: FDA-Public Use
  Company Number: US-PFIZER INC-2013130406

PATIENT
  Age: 57 Year
  Sex: Male
  Weight: 98 kg

DRUGS (4)
  1. ZOLOFT [Suspect]
     Indication: BIPOLAR DISORDER
     Dosage: 300 MG, 1X/DAY
     Dates: end: 2013
  2. ZOLOFT [Suspect]
     Indication: DEPRESSION
     Dosage: UNK
  3. WELLBUTRIN [Concomitant]
     Dosage: 200 MG, 1X/DAY
  4. RISPERDAL [Concomitant]
     Indication: BIPOLAR DISORDER
     Dosage: 150 MG (TAKING ONE AND A HALF TABLETS), 1X/DAY

REACTIONS (1)
  - Loss of libido [Not Recovered/Not Resolved]
